FAERS Safety Report 20857561 (Version 2)
Quarter: 2022Q2

REPORT INFORMATION
  Report Type: Spontaneous
  Country: US (occurrence: US)
  Receive Date: 20220520
  Receipt Date: 20220530
  Transmission Date: 20220721
  Serious: No
  Sender: FDA-Public Use
  Company Number: US-BRISTOL-MYERS SQUIBB COMPANY-2022-040897

PATIENT
  Age: 65 Year
  Sex: Male
  Weight: 142.88 kg

DRUGS (1)
  1. REVLIMID [Suspect]
     Active Substance: LENALIDOMIDE
     Indication: Plasma cell myeloma
     Dosage: TAKE 1 CAPSULE BY MOUTH EVERY DAY ON DAYS 1-21 EVERY 28 DAY CYCLE
     Route: 048

REACTIONS (6)
  - Vision blurred [Unknown]
  - Dizziness [Unknown]
  - Product dose omission issue [Unknown]
  - Headache [Unknown]
  - Visual impairment [Unknown]
  - Balance disorder [Unknown]
